FAERS Safety Report 5849104-7 (Version None)
Quarter: 2008Q3

REPORT INFORMATION
  Report Type: 
  Country: None (occurrence: None)
  Receive Date: 20080815
  Receipt Date: 20080806
  Transmission Date: 20090109
  Serious: Yes (Life-Threatening, Hospitalization)
  Sender: FDA-Public Use
  Company Number: 1000000480

PATIENT
  Age: 39 Year
  Sex: Female

DRUGS (9)
  1. CITALOPRAM  (CITALOPRAM HYDROBROMDE) [Suspect]
     Indication: DEPRESSION
     Dosage: 40 MG (40 MG, 1 IN 1 D), ORAL
     Route: 048
     Dates: end: 20070713
  2. REBOXETINE (4 MILLIGRAM) [Suspect]
     Indication: DEPRESSION
     Dosage: 8 MG (4 MG, 2 IN 1 D), ORAL
     Route: 048
     Dates: start: 20070802, end: 20070808
  3. CELECOXIB (100 MILLIGRAM) [Concomitant]
  4. CYCLIZINE (50 MILLIGRAM) [Concomitant]
  5. GABAPENTIN (600 MILLIGRAM) [Concomitant]
  6. LOPERAMIDE (2 MILLIGRAM) [Concomitant]
  7. MEBEVERINE (135 MILLIGRAM) [Concomitant]
  8. QUININE (200 MILLIGRAM) [Concomitant]
  9. ZOPICLONE (7.5 MILLIGRAM) [Concomitant]

REACTIONS (11)
  - ARRHYTHMIA [None]
  - BRAIN OEDEMA [None]
  - DRUG LEVEL INCREASED [None]
  - GLASGOW COMA SCALE ABNORMAL [None]
  - HYPERSOMNIA [None]
  - HYPOTHERMIA [None]
  - PAIN [None]
  - RHABDOMYOLYSIS [None]
  - SEROTONIN SYNDROME [None]
  - UNRESPONSIVE TO STIMULI [None]
  - VENTRICULAR TACHYCARDIA [None]
